FAERS Safety Report 7599916-7 (Version None)
Quarter: 2011Q3

REPORT INFORMATION
  Report Type: 
  Country: None (occurrence: None)
  Receive Date: 20110711
  Receipt Date: 20110704
  Transmission Date: 20111222
  Serious: Yes (Death)
  Sender: FDA-Public Use
  Company Number: JP-ASTELLAS-2011US003595

PATIENT
  Age: 14 Year

DRUGS (1)
  1. AMBISOME [Suspect]
     Indication: FUNGAL INFECTION
     Dosage: UNK
     Route: 065

REACTIONS (1)
  - HEPATIC FAILURE [None]
